FAERS Safety Report 12088697 (Version 1)
Quarter: 2016Q1

REPORT INFORMATION
  Report Type: Spontaneous
  Country: US (occurrence: US)
  Receive Date: 20160218
  Receipt Date: 20160218
  Transmission Date: 20160526
  Serious: No
  Sender: FDA-Public Use
  Company Number: US-009507513-1602USA007983

PATIENT

DRUGS (2)
  1. FOSAMAX [Suspect]
     Active Substance: ALENDRONATE SODIUM
     Dosage: 70 MG, QW
     Route: 048
  2. FOSAMAX [Suspect]
     Active Substance: ALENDRONATE SODIUM
     Dosage: TWO DOSES OF 70 MG IN THE SAME WEEK (ORALLY)
     Route: 048

REACTIONS (3)
  - No adverse event [Unknown]
  - Accidental overdose [Unknown]
  - Inappropriate schedule of drug administration [Unknown]
